FAERS Safety Report 10455957 (Version 1)
Quarter: 2014Q3

REPORT INFORMATION
  Report Type: Spontaneous
  Country: US (occurrence: US)
  Receive Date: 20140916
  Receipt Date: 20140916
  Transmission Date: 20150326
  Serious: No
  Sender: FDA-Public Use
  Company Number: US-BAYER-2014-137635

PATIENT
  Age: 16 Year
  Sex: Female
  Weight: 44 kg

DRUGS (2)
  1. ALEVE [Suspect]
     Active Substance: NAPROXEN SODIUM
     Dosage: 2 IN MORNING AND 2 IN THE AFTERNOON
     Route: 048
     Dates: start: 20140910, end: 20140910
  2. ALEVE [Suspect]
     Active Substance: NAPROXEN SODIUM
     Dosage: 2 DF, UNK
     Route: 048

REACTIONS (2)
  - Extra dose administered [None]
  - Drug ineffective [None]

NARRATIVE: CASE EVENT DATE: 20140910
